FAERS Safety Report 24456232 (Version 2)
Quarter: 2024Q4

REPORT INFORMATION
  Report Type: Spontaneous
  Country: MX (occurrence: MX)
  Receive Date: 20241017
  Receipt Date: 20241018
  Transmission Date: 20250114
  Serious: No
  Sender: ROCHE
  Company Number: MX-ROCHE-3495280

PATIENT
  Age: 33 Year
  Sex: Female
  Weight: 70.0 kg

DRUGS (2)
  1. RITUXIMAB [Suspect]
     Active Substance: RITUXIMAB
     Indication: Neuromyelitis optica spectrum disorder
     Dosage: THE LAST APPLICATION WAS ON 25/JUL/2023
     Route: 042
     Dates: start: 20230205
  2. PREGABALIN [Concomitant]
     Active Substance: PREGABALIN

REACTIONS (3)
  - Off label use [Unknown]
  - Eye swelling [Recovered/Resolved]
  - Loss of bladder sensation [Not Recovered/Not Resolved]

NARRATIVE: CASE EVENT DATE: 20230205
